FAERS Safety Report 9753128 (Version 2)
Quarter: 2013Q4

REPORT INFORMATION
  Report Type: Spontaneous
  Country: US (occurrence: US)
  Receive Date: 20131213
  Receipt Date: 20131213
  Transmission Date: 20140711
  Serious: No
  Sender: FDA-Public Use
  Company Number: US-GILEAD-2010-0026295

PATIENT
  Sex: Female

DRUGS (26)
  1. LETAIRIS [Suspect]
     Indication: PULMONARY ARTERIAL HYPERTENSION
     Route: 048
     Dates: start: 20091009
  2. REVATIO [Concomitant]
  3. LISINOPRIL [Concomitant]
  4. COREG [Concomitant]
  5. TRAZODONE [Concomitant]
  6. COGENTIN [Concomitant]
  7. PHENERGAN [Concomitant]
  8. SKELAXIN [Concomitant]
  9. FLONASE [Concomitant]
  10. LORTAB 10/500 [Concomitant]
  11. CELEBREX [Concomitant]
  12. TOPAMAX [Concomitant]
  13. RITALIN [Concomitant]
  14. METFORMIN [Concomitant]
  15. BUSPIRONE HCL [Concomitant]
  16. SEROQUEL [Concomitant]
  17. LEXAPRO [Concomitant]
  18. FROVA [Concomitant]
  19. PROTONIX [Concomitant]
  20. COLCHICINE [Concomitant]
  21. FE-TINIC [Concomitant]
  22. ARANESP [Concomitant]
  23. ALBNEB [Concomitant]
  24. ADVAIR [Concomitant]
  25. PROAIR [Concomitant]
  26. SINGULAIR [Concomitant]

REACTIONS (2)
  - Leukopenia [Recovered/Resolved]
  - Oedema peripheral [Unknown]
